FAERS Safety Report 5687018-6 (Version None)
Quarter: 2008Q1

REPORT INFORMATION
  Report Type: 
  Country: None (occurrence: None)
  Receive Date: 20080328
  Receipt Date: 20070611
  Transmission Date: 20080703
  Serious: Yes (Other)
  Sender: FDA-Public Use
  Company Number: US-BAYER-US-2007-017617

PATIENT
  Age: 31 Year
  Sex: Female
  Weight: 70 kg

DRUGS (3)
  1. MIRENA [Suspect]
     Indication: CONTRACEPTION
     Route: 015
     Dates: start: 20060620, end: 20070511
  2. LEXAPRO [Concomitant]
     Indication: DEPRESSION
     Route: 048
  3. AMBIEN [Concomitant]
     Indication: INSOMNIA
     Route: 048

REACTIONS (2)
  - ABORTION SPONTANEOUS [None]
  - PREGNANCY WITH CONTRACEPTIVE DEVICE [None]
